FAERS Safety Report 17534462 (Version 1)
Quarter: 2020Q1

REPORT INFORMATION
  Report Type: Report from Study
  Country: GB (occurrence: GB)
  Receive Date: 20200312
  Receipt Date: 20200312
  Transmission Date: 20200409
  Serious: Yes (Hospitalization)
  Sender: FDA-Public Use
  Company Number: GB-JNJFOC-20190201492

PATIENT
  Age: 75 Year
  Sex: Female
  Weight: 90 kg

DRUGS (20)
  1. STELARA [Suspect]
     Active Substance: USTEKINUMAB
     Indication: PSORIASIS
     Route: 058
     Dates: start: 20150819, end: 20150915
  2. SERETIDE [Concomitant]
     Active Substance: FLUTICASONE PROPIONATE\SALMETEROL XINAFOATE
     Route: 065
     Dates: start: 20140615
  3. DERMOL [Concomitant]
     Active Substance: BENZALKONIUM CHLORIDE\CHLORHEXIDINE HYDROCHLORIDE\ISOPROPYL MYRISTATE\PARAFFIN
     Route: 065
     Dates: start: 20141210
  4. EPADERM [Concomitant]
     Active Substance: MINERAL OIL\PETROLATUM\WAX, EMULSIFYING
     Route: 061
     Dates: start: 20130615
  5. BETNOVATE [Concomitant]
     Active Substance: BETAMETHASONE
     Route: 061
     Dates: start: 20141210
  6. AMLODIPINE [Concomitant]
     Active Substance: AMLODIPINE BESYLATE
     Route: 065
     Dates: start: 20130615
  7. ETRIVEX [Concomitant]
     Active Substance: CLOBETASOL PROPIONATE
     Route: 061
     Dates: start: 20130615
  8. STELARA [Suspect]
     Active Substance: USTEKINUMAB
     Route: 058
     Dates: start: 20180604, end: 20190111
  9. LOSARTAN. [Concomitant]
     Active Substance: LOSARTAN
     Route: 065
     Dates: start: 20140320
  10. EUMOVATE [Concomitant]
     Active Substance: CLOBETASONE BUTYRATE
     Route: 065
     Dates: start: 20141210
  11. FEMARA [Concomitant]
     Active Substance: LETROZOLE
     Route: 065
     Dates: start: 20151021
  12. DOXAZOSIN [Concomitant]
     Active Substance: DOXAZOSIN MESYLATE
     Route: 065
     Dates: start: 20130615
  13. ATORVASTATIN [Concomitant]
     Active Substance: ATORVASTATIN
     Route: 065
     Dates: start: 20130615
  14. PARACETAMOL [Concomitant]
     Active Substance: ACETAMINOPHEN
     Route: 065
     Dates: start: 20140201
  15. SALBUTAMOL [Concomitant]
     Active Substance: ALBUTEROL
     Route: 065
     Dates: start: 20140615
  16. CITALOPRAM [Concomitant]
     Active Substance: CITALOPRAM HYDROBROMIDE
     Route: 065
     Dates: start: 20080615
  17. GABAPENTIN. [Concomitant]
     Active Substance: GABAPENTIN
     Route: 065
     Dates: start: 20130615
  18. TIOTROPIUM [Concomitant]
     Active Substance: TIOTROPIUM
     Route: 065
     Dates: start: 20130615
  19. ASPIRIN. [Concomitant]
     Active Substance: ASPIRIN
     Route: 065
     Dates: start: 20130615
  20. MIRABEGRON [Concomitant]
     Active Substance: MIRABEGRON
     Route: 065
     Dates: start: 20140125

REACTIONS (4)
  - Viral infection [Unknown]
  - Chest pain [Recovered/Resolved]
  - Urinary tract infection [Unknown]
  - Productive cough [Recovered/Resolved]
